FAERS Safety Report 10903129 (Version 5)
Quarter: 2015Q2

REPORT INFORMATION
  Report Type: Report from Study
  Country: KR (occurrence: KR)
  Receive Date: 20150311
  Receipt Date: 20150421
  Transmission Date: 20150821
  Serious: Yes (Hospitalization)
  Sender: FDA-Public Use
  Company Number: KR-ROCHE-1548544

PATIENT
  Age: 50 Year
  Sex: Female
  Weight: 52.9 kg

DRUGS (13)
  1. TRASTUZUMAB EMTANSINE [Suspect]
     Active Substance: ADO-TRASTUZUMAB EMTANSINE
     Indication: HER-2 POSITIVE BREAST CANCER
     Dosage: START TIME OF INFUSION: 15:05, STOP TIME OF INFUSION: 16:35. INTENDED DOSE 3.6 MG/KG (190 MG)?LAST D
     Route: 042
     Dates: start: 20150130
  2. ACETAMINOPHEN. [Concomitant]
     Active Substance: ACETAMINOPHEN
     Route: 065
     Dates: start: 20150130
  3. SODIUM HYALURONATE [Concomitant]
     Active Substance: HYALURONATE SODIUM
     Route: 065
     Dates: start: 20150209, end: 20150225
  4. SODIUM HYALURONATE [Concomitant]
     Active Substance: HYALURONATE SODIUM
     Route: 065
     Dates: start: 20150311
  5. SILYMARIN [Concomitant]
     Active Substance: MILK THISTLE
     Route: 065
     Dates: start: 20150217, end: 20150225
  6. FAMOTIDINE. [Concomitant]
     Active Substance: FAMOTIDINE
     Route: 065
     Dates: start: 20150302, end: 20150302
  7. CHLORPHENIRAMINE MALEATE. [Concomitant]
     Active Substance: CHLORPHENIRAMINE MALEATE
     Indication: PREMEDICATION
     Route: 065
     Dates: start: 20150130
  8. PERTUZUMAB [Suspect]
     Active Substance: PERTUZUMAB
     Indication: HER-2 POSITIVE BREAST CANCER
     Dosage: START TIME OF INFUSION: 13:05 STOP TIME OF INFUSION: 14:05?LOADING DOSE
     Route: 042
     Dates: start: 20150130
  9. LEVOFLOXACIN. [Concomitant]
     Active Substance: LEVOFLOXACIN
     Route: 065
     Dates: start: 20150209, end: 20150225
  10. PERTUZUMAB [Suspect]
     Active Substance: PERTUZUMAB
     Dosage: MAINTENANCE DOSE?LAST DOSE PRIOR TO SAE: 25/FEB/2015, INFUSION START TIME: 14:20
     Route: 042
     Dates: start: 20150225
  11. MAGNESIUM OXIDE. [Concomitant]
     Active Substance: MAGNESIUM OXIDE
     Route: 065
     Dates: start: 20150225
  12. SOLCOSERYL [Concomitant]
     Active Substance: SOLCOSERYL
     Dosage: CONCENTRATE
     Route: 065
     Dates: start: 20150209, end: 20150225
  13. UDCA [Concomitant]
     Route: 065
     Dates: start: 20150217, end: 20150225

REACTIONS (1)
  - Gastritis [Not Recovered/Not Resolved]

NARRATIVE: CASE EVENT DATE: 20150302
